FAERS Safety Report 10975416 (Version 2)
Quarter: 2015Q2

REPORT INFORMATION
  Report Type: Spontaneous
  Country: PH (occurrence: PH)
  Receive Date: 20150401
  Receipt Date: 20150416
  Transmission Date: 20150821
  Serious: Yes (Other)
  Sender: FDA-Public Use
  Company Number: ALCN2015PH001971

PATIENT

DRUGS (1)
  1. TOBRADEX [Suspect]
     Active Substance: DEXAMETHASONE\TOBRAMYCIN
     Indication: CHEMICAL EYE INJURY
     Dosage: 1 UNK, UNK
     Route: 047

REACTIONS (3)
  - Iridocyclitis [Recovering/Resolving]
  - Chorioretinitis [Recovering/Resolving]
  - Product counterfeit [None]
